FAERS Safety Report 11053054 (Version 2)
Quarter: 2015Q2

REPORT INFORMATION
  Report Type: Spontaneous
  Country: US (occurrence: US)
  Receive Date: 20150421
  Receipt Date: 20150525
  Transmission Date: 20150821
  Serious: No
  Sender: FDA-Public Use
  Company Number: US-JNJFOC-20150216722

PATIENT
  Age: 57 Year
  Sex: Male

DRUGS (1)
  1. RISPERDAL CONSTA [Suspect]
     Active Substance: RISPERIDONE
     Indication: SCHIZOPHRENIA
     Route: 030
     Dates: end: 2014

REACTIONS (4)
  - Neglect of personal appearance [Recovered/Resolved]
  - Incoherent [Recovered/Resolved]
  - Social avoidant behaviour [Recovered/Resolved]
  - Language disorder [Recovered/Resolved]
